FAERS Safety Report 8215162-8 (Version None)
Quarter: 2012Q1

REPORT INFORMATION
  Report Type: 
  Country: None (occurrence: None)
  Receive Date: 20120229
  Receipt Date: 20110318
  Transmission Date: 20120608
  Serious: Yes (Hospitalization)
  Sender: FDA-Public Use
  Company Number: PHHY2011US23492

PATIENT
  Sex: Female

DRUGS (11)
  1. ARANESP [Suspect]
     Indication: RENAL FAILURE CHRONIC
     Dosage: 40
     Dates: start: 20100914, end: 20101207
  2. NEORAL [Suspect]
     Indication: HEART TRANSPLANT
     Dosage: 140 MG, ORAL
     Route: 048
     Dates: start: 20020101
  3. PERINDOPRIL ERBUMINE [Concomitant]
  4. LIPITOR [Concomitant]
  5. BERIVINE (RIBOFLAVIN) [Concomitant]
  6. BISOPROLOL FUMARATE [Concomitant]
  7. PRESERVISON LUTEIN EYE VITA.+MIN.SUP.SOFTG. (ASCORBIC ACID, CUPRIC OXI [Concomitant]
  8. ALLOPURINOL [Suspect]
     Dosage: 100 MG
  9. CELLCEPT [Concomitant]
  10. ASPIRIN [Concomitant]
  11. ROCALTROL [Concomitant]

REACTIONS (5)
  - BLOOD LACTATE DEHYDROGENASE INCREASED [None]
  - BLOOD IRON INCREASED [None]
  - BLOOD PARATHYROID HORMONE INCREASED [None]
  - HAEMOGLOBIN DECREASED [None]
  - SERUM FERRITIN INCREASED [None]
